FAERS Safety Report 10286550 (Version 3)
Quarter: 2014Q4

REPORT INFORMATION
  Report Type: Spontaneous
  Country: SE (occurrence: None)
  Receive Date: 20140707
  Receipt Date: 20141016
  Transmission Date: 20150528
  Serious: Yes (Death, Other)
  Sender: FDA-Public Use
  Company Number: 2014-19909

PATIENT
  Age: 82 Year
  Sex: Female

DRUGS (3)
  1. CHLORHEXIDINE IN ALCOHOL (CHLORHEXIDINE GLUCONATE) [Concomitant]
  2. TETRACAINE (TETRACAINE) [Concomitant]
  3. EYLEA [Suspect]
     Active Substance: AFLIBERCEPT
     Indication: AGE-RELATED MACULAR DEGENERATION
     Dosage: LAST ADMINSTRATION 18-FEB-2014 00:00
     Route: 031
     Dates: start: 20140107, end: 20140218

REACTIONS (1)
  - Death [None]

NARRATIVE: CASE EVENT DATE: 20140325
